FAERS Safety Report 19949590 (Version 4)
Quarter: 2021Q4

REPORT INFORMATION
  Report Type: Other
  Country: CH (occurrence: CH)
  Receive Date: 20211013
  Receipt Date: 20211028
  Transmission Date: 20220303
  Serious: Yes (Life-Threatening)
  Sender: FDA-Public Use
  Company Number: CH-ROCHE-2932982

PATIENT
  Sex: Female

DRUGS (1)
  1. RITUXIMAB [Suspect]
     Active Substance: RITUXIMAB
     Indication: B-cell lymphoma
     Dosage: 6 CYCLES OF IMMUNO-CHEMOTHERAPY
     Route: 065
     Dates: start: 20101108, end: 20110215

REACTIONS (1)
  - Pancreatic carcinoma [Unknown]
